FAERS Safety Report 14539466 (Version 3)
Quarter: 2018Q1

REPORT INFORMATION
  Report Type: Spontaneous
  Country: AU (occurrence: AU)
  Receive Date: 20180216
  Receipt Date: 20180321
  Transmission Date: 20180509
  Serious: Yes (Other)
  Sender: FDA-Public Use
  Company Number: PHHY2018AU022602

PATIENT
  Age: 6 Year
  Sex: Male

DRUGS (1)
  1. CERTICAN [Suspect]
     Active Substance: EVEROLIMUS
     Indication: HEART TRANSPLANT
     Dosage: 0.5 MG, UNK
     Route: 065

REACTIONS (3)
  - Autism spectrum disorder [Unknown]
  - Product physical issue [Unknown]
  - Renal impairment [Unknown]
